FAERS Safety Report 14145684 (Version 1)
Quarter: 2017Q4

REPORT INFORMATION
  Report Type: Spontaneous
  Country: US (occurrence: US)
  Receive Date: 20171030
  Receipt Date: 20171030
  Transmission Date: 20180321
  Serious: Yes (Hospitalization)
  Sender: FDA-Public Use
  Company Number: None

PATIENT
  Age: 58 Year
  Sex: Female
  Weight: 90 kg

DRUGS (12)
  1. QUETIAPINE. [Suspect]
     Active Substance: QUETIAPINE
     Indication: BIPOLAR DISORDER
     Route: 048
  2. PAROXETINE. [Concomitant]
     Active Substance: PAROXETINE
  3. CARISPRODOL [Concomitant]
     Active Substance: CARISOPRODOL
  4. LISINOPRIL. [Concomitant]
     Active Substance: LISINOPRIL
  5. SAVELLA [Concomitant]
     Active Substance: MILNACIPRAN HYDROCHLORIDE
  6. HYDROMORPHONE [Concomitant]
     Active Substance: HYDROMORPHONE
  7. LAMOTRIGINE. [Concomitant]
     Active Substance: LAMOTRIGINE
  8. DICLOFENAC [Concomitant]
     Active Substance: DICLOFENAC
  9. DOXYCYCLINE. [Concomitant]
     Active Substance: DOXYCYCLINE
  10. ENOXAPARIN [Concomitant]
     Active Substance: ENOXAPARIN
  11. TROSPIUM [Concomitant]
     Active Substance: TROSPIUM
  12. LEVETIRACETAM. [Concomitant]
     Active Substance: LEVETIRACETAM

REACTIONS (1)
  - Pancreatitis [None]

NARRATIVE: CASE EVENT DATE: 20171028
